FAERS Safety Report 4359823-X (Version None)
Quarter: 2004Q2

REPORT INFORMATION
  Report Type: 
  Country: None (occurrence: None)
  Receive Date: 20040514
  Receipt Date: 20040506
  Transmission Date: 20050107
  Serious: Yes (Hospitalization)
  Sender: FDA-Public Use
  Company Number: DSA_24368_2004

PATIENT
  Age: 48 Year
  Sex: Female

DRUGS (2)
  1. LORAZEPAM [Suspect]
     Dosage: 8 MG ONCE PO
     Route: 048
     Dates: start: 20040430, end: 20040430
  2. BEER [Suspect]
     Dates: start: 20040430, end: 20040430

REACTIONS (2)
  - FATIGUE [None]
  - INTENTIONAL OVERDOSE [None]
